FAERS Safety Report 5361145-5 (Version None)
Quarter: 2007Q2

REPORT INFORMATION
  Report Type: 
  Country: None (occurrence: None)
  Receive Date: 20070614
  Receipt Date: 20070608
  Transmission Date: 20071010
  Serious: Yes (Death, Life-Threatening, Disabling, Other)
  Sender: FDA-Public Use
  Company Number: 2007SP011511

PATIENT
  Age: 65 Year
  Sex: Female
  Weight: 54 kg

DRUGS (15)
  1. TEMODAL [Suspect]
     Indication: GLIOBLASTOMA MULTIFORME
     Dosage: 75 MG/M2; QD; PO
     Route: 048
     Dates: start: 20061222, end: 20070129
  2. VALPROATE SODIUM [Suspect]
     Indication: DRUG USE FOR UNKNOWN INDICATION
     Dosage: PO
     Route: 048
     Dates: start: 20061222, end: 20070205
  3. TAGAMET [Suspect]
     Indication: DRUG USE FOR UNKNOWN INDICATION
     Dosage: PO
     Route: 048
     Dates: start: 20061222, end: 20070205
  4. BETAMETHASONE [Suspect]
     Indication: DRUG USE FOR UNKNOWN INDICATION
     Dosage: PO
     Route: 048
     Dates: start: 20061222
  5. NASEA-OD [Concomitant]
  6. DOGMATYL [Concomitant]
  7. MAALOX FAST BLOCKER [Concomitant]
  8. MAGLAX [Concomitant]
  9. PURSENNID [Concomitant]
  10. LEVOFLOXACIN [Concomitant]
  11. ALEVIATIN [Concomitant]
  12. ZANTAC [Concomitant]
  13. TAKEPRON OD [Concomitant]
  14. THYRADIN-S [Concomitant]
  15. PARIET [Concomitant]

REACTIONS (10)
  - ANAEMIA [None]
  - CARDIAC FAILURE [None]
  - DISEASE PROGRESSION [None]
  - GASTROINTESTINAL HAEMORRHAGE [None]
  - GENERAL PHYSICAL HEALTH DETERIORATION [None]
  - GLIOBLASTOMA [None]
  - PLATELET COUNT DECREASED [None]
  - PNEUMOCYSTIS JIROVECI PNEUMONIA [None]
  - PNEUMONIA [None]
  - WHITE BLOOD CELL COUNT DECREASED [None]
